FAERS Safety Report 9910702 (Version 1)
Quarter: 2014Q1

REPORT INFORMATION
  Report Type: Spontaneous
  Country: US (occurrence: US)
  Receive Date: 20140219
  Receipt Date: 20140219
  Transmission Date: 20141002
  Serious: Yes (Hospitalization)
  Sender: FDA-Public Use
  Company Number: US-BAXTER-2014BAX007876

PATIENT
  Sex: Female

DRUGS (4)
  1. GAMMAGARD LIQUID [Suspect]
     Indication: PRODUCT USED FOR UNKNOWN INDICATION
     Route: 065
     Dates: start: 20140114
  2. GAMMAGARD LIQUID [Suspect]
     Route: 065
     Dates: start: 20140114
  3. GAMMAGARD LIQUID [Suspect]
     Route: 065
     Dates: start: 20140203
  4. GAMMAGARD LIQUID [Suspect]
     Route: 065
     Dates: start: 20140203

REACTIONS (2)
  - Body temperature increased [Unknown]
  - Chills [Unknown]
